FAERS Safety Report 20682783 (Version 12)
Quarter: 2022Q4

REPORT INFORMATION
  Report Type: Report from Study
  Country: None (occurrence: ES)
  Receive Date: 20220407
  Receipt Date: 20221107
  Transmission Date: 20230112
  Serious: Yes (Hospitalization, Other)
  Sender: FDA-Public Use
  Company Number: ES-AKCEA THERAPEUTICS, INC.-2022IS003158

PATIENT
  Age: 80 Year
  Sex: Male

DRUGS (5)
  1. TEGSEDI [Suspect]
     Active Substance: INOTERSEN SODIUM
     Indication: Hereditary neuropathic amyloidosis
     Route: 058
     Dates: start: 20210531, end: 20220411
  2. DEVICE [Suspect]
     Active Substance: DEVICE
  3. PREDNISONE [Concomitant]
     Active Substance: PREDNISONE
     Route: 065
  4. TEGSEDI [Suspect]
     Active Substance: INOTERSEN SODIUM
     Route: 058
     Dates: start: 20220509
  5. CORTISONE [Concomitant]
     Active Substance: CORTISONE
     Route: 065

REACTIONS (18)
  - Haemolytic anaemia [Unknown]
  - Blood creatinine decreased [Recovered/Resolved]
  - Blood sodium decreased [Recovered/Resolved]
  - Blood albumin decreased [Not Recovered/Not Resolved]
  - Prealbumin decreased [Not Recovered/Not Resolved]
  - Mean cell haemoglobin increased [Recovered/Resolved]
  - Pain in extremity [Not Recovered/Not Resolved]
  - Red blood cell count decreased [Recovered/Resolved]
  - Mean cell volume increased [Recovered/Resolved]
  - Bedridden [Not Recovered/Not Resolved]
  - Dysuria [Not Recovered/Not Resolved]
  - Urinary incontinence [Not Recovered/Not Resolved]
  - Protein total decreased [Unknown]
  - Depressed mood [Not Recovered/Not Resolved]
  - Vitamin D decreased [Unknown]
  - Immunoglobulins decreased [Unknown]
  - Wheelchair user [Not Recovered/Not Resolved]
  - Oliguria [Unknown]

NARRATIVE: CASE EVENT DATE: 20220407
